FAERS Safety Report 6596136-X (Version None)
Quarter: 2010Q1

REPORT INFORMATION
  Report Type: 
  Country: None (occurrence: None)
  Receive Date: 20100223
  Receipt Date: 20100216
  Transmission Date: 20100710
  Serious: Yes (Other)
  Sender: FDA-Public Use
  Company Number: GR-ELI_LILLY_AND_COMPANY-GR201002004710

PATIENT

DRUGS (5)
  1. GEMZAR [Suspect]
     Indication: PLEURAL MESOTHELIOMA MALIGNANT
     Dosage: 1000 MG/M2, ON DAY 1 AND 14 OF A 28 DAY CYCLE.
     Route: 042
  2. DOCETAXEL [Concomitant]
     Indication: PLEURAL MESOTHELIOMA MALIGNANT
     Dosage: 80 MG/M2, ON DAY 1 AND 14 OF A 28 DAY CYCLE.
     Route: 065
  3. DEXTROSE 5% [Concomitant]
     Dosage: 500 ML, UNKNOWN
     Route: 065
  4. GRANULOCYTE COLONY STIMULATING FACTOR [Concomitant]
     Dosage: 150 UG/M2, DAILY (1/D)
     Route: 058
  5. DEXAMETHASONE [Concomitant]
     Dosage: UNK, UNKNOWN
     Route: 048

REACTIONS (2)
  - LUNG DISORDER [None]
  - PNEUMONITIS [None]
